FAERS Safety Report 5519996-X (Version None)
Quarter: 2007Q4

REPORT INFORMATION
  Report Type: 
  Country: None (occurrence: None)
  Receive Date: 20071116
  Receipt Date: 20071113
  Transmission Date: 20080405
  Serious: Yes (Death, Hospitalization, Other)
  Sender: FDA-Public Use
  Company Number: US-ASTRAZENECA-2007UW26194

PATIENT
  Age: 25114 Day
  Sex: Male

DRUGS (14)
  1. TENORMIN [Suspect]
     Route: 048
  2. THALOMID [Suspect]
     Indication: MULTIPLE MYELOMA
     Dates: start: 20000301, end: 20020801
  3. THALOMID [Suspect]
  4. THALOMID [Suspect]
     Dates: end: 20060301
  5. TIZANIDINE HCL [Concomitant]
     Dates: start: 20060401
  6. VELCADE [Concomitant]
     Dates: start: 20060101
  7. ZOLOFT [Concomitant]
     Indication: DEPRESSION
     Dates: start: 20040101
  8. PLAVIX [Concomitant]
     Indication: CORONARY ARTERY DISEASE
  9. ASPIRIN [Concomitant]
     Indication: CORONARY ARTERY DISEASE
     Dates: start: 20020101, end: 20061127
  10. NORVASC [Concomitant]
     Indication: CORONARY ARTERY DISEASE
     Dates: start: 20000101, end: 20061127
  11. COUMADIN [Concomitant]
     Dates: start: 20000101
  12. MIDODRINE [Concomitant]
     Dates: start: 20000101, end: 20061127
  13. FLUCORT [Concomitant]
     Dates: start: 20050501
  14. PINDOLOL [Concomitant]
     Dates: start: 20050501

REACTIONS (3)
  - BRADYCARDIA [None]
  - DEATH [None]
  - DEMENTIA ALZHEIMER'S TYPE [None]
